FAERS Safety Report 7603026-X (Version None)
Quarter: 2011Q3

REPORT INFORMATION
  Report Type: 
  Country: None (occurrence: None)
  Receive Date: 20110711
  Receipt Date: 20110711
  Transmission Date: 20111222
  Serious: No
  Sender: FDA-Public Use
  Company Number: None

PATIENT
  Age: 54 Year
  Sex: Male
  Weight: 86.1834 kg

DRUGS (1)
  1. MALARONE [Suspect]
     Dosage: ONE TAB ONCE-A-DAY PO
     Route: 048
     Dates: start: 20110324, end: 20110325

REACTIONS (3)
  - SKIN DISCOLOURATION [None]
  - PAIN [None]
  - JOINT RANGE OF MOTION DECREASED [None]
